FAERS Safety Report 13359760 (Version 2)
Quarter: 2017Q2

REPORT INFORMATION
  Report Type: Spontaneous
  Country: CA (occurrence: CA)
  Receive Date: 20170322
  Receipt Date: 20170405
  Transmission Date: 20170830
  Serious: Yes (Congenital Anomaly)
  Sender: FDA-Public Use
  Company Number: CA-ABBVIE-17P-028-1915553-00

PATIENT

DRUGS (1)
  1. VALPROIC ACID. [Suspect]
     Active Substance: VALPROIC ACID
     Indication: MATERNAL EXPOSURE TIMING UNSPECIFIED
     Route: 064

REACTIONS (14)
  - Teratogenicity [Unknown]
  - Hypertelorism of orbit [Unknown]
  - Congenital musculoskeletal anomaly [Unknown]
  - Foetal growth restriction [Unknown]
  - Foetal exposure during pregnancy [Unknown]
  - Congenital nose malformation [Unknown]
  - Low set ears [Unknown]
  - Lip disorder [Unknown]
  - Atrophy [Unknown]
  - Head deformity [Unknown]
  - Dysmorphism [Unknown]
  - Eye haemangioma [Unknown]
  - Congenital oral malformation [Unknown]
  - Camptodactyly congenital [Unknown]
